FAERS Safety Report 4647985-6 (Version None)
Quarter: 2005Q2

REPORT INFORMATION
  Report Type: 
  Country: None (occurrence: None)
  Receive Date: 20050331
  Receipt Date: 20050119
  Transmission Date: 20051028
  Serious: No
  Sender: FDA-Public Use
  Company Number: 05P-163-0287297

PATIENT
  Age: 53 Year
  Sex: Female
  Weight: 92.9874 kg

DRUGS (8)
  1. HUMIRA [Suspect]
     Indication: RHEUMATOID ARTHRITIS
     Dosage: 40 MG, 1 IN 2 WK, SUBCUTANEOUS
     Route: 058
     Dates: start: 20040201, end: 20041223
  2. METHOTREXATE [Concomitant]
  3. PREDNISONE [Concomitant]
  4. LOTREL [Concomitant]
  5. ATORVASTATIN CALCIUM [Concomitant]
  6. FOLIC ACID [Concomitant]
  7. MULTI-VITAMINS [Concomitant]
  8. MOMETASONE FUROATE [Concomitant]

REACTIONS (4)
  - ASTHENIA [None]
  - BRONCHITIS [None]
  - FUNGAL INFECTION [None]
  - SINUSITIS [None]
